FAERS Safety Report 9916690 (Version 2)
Quarter: 2014Q2

REPORT INFORMATION
  Report Type: Spontaneous
  Country: US (occurrence: US)
  Receive Date: 20140221
  Receipt Date: 20140501
  Transmission Date: 20141212
  Serious: Yes (Other)
  Sender: FDA-Public Use
  Company Number: US-PFIZER INC-2014048157

PATIENT
  Age: 51 Year
  Sex: Male

DRUGS (11)
  1. CHANTIX [Suspect]
     Indication: SMOKING CESSATION THERAPY
     Dosage: 2 MG, 1X/DAY
     Route: 048
     Dates: start: 20121101, end: 201301
  2. NORVASC [Concomitant]
     Dosage: 5 MG, 1X/DAY
     Route: 048
  3. BENAZEPRIL [Concomitant]
     Dosage: 20 MG, 1X/DAY
     Route: 048
  4. METOPROLOL TARTRATE [Concomitant]
     Dosage: 25 MG, 1X/DAY
     Route: 048
     Dates: end: 20121210
  5. METOPROLOL TARTRATE [Concomitant]
     Dosage: 25 MG, 2X/DAY
  6. METFORMIN [Concomitant]
     Dosage: 500 MG, 2X/DAY
     Route: 048
  7. CRESTOR [Concomitant]
     Dosage: 20 MG, AT BEDTIME
     Route: 048
     Dates: end: 20121210
  8. PLAVIX [Concomitant]
     Dosage: 150 MG, 1X/DAY
     Route: 048
     Dates: end: 20121210
  9. PLAVIX [Concomitant]
     Dosage: 75 MG, 1X/DAY
     Route: 048
  10. VASOTEC [Concomitant]
     Dosage: 20 MG, 1X/DAY
     Route: 048
     Dates: end: 20121210
  11. ASPIRIN [Concomitant]
     Dosage: 81 MG, 1X/DAY
     Route: 048

REACTIONS (18)
  - Type 2 diabetes mellitus [Unknown]
  - Myocardial infarction [Unknown]
  - Arterial occlusive disease [Unknown]
  - Chest pain [Unknown]
  - Prostatic specific antigen increased [Unknown]
  - Abnormal dreams [Unknown]
  - Weight decreased [Unknown]
  - Pre-existing condition improved [Unknown]
  - Therapeutic response changed [Unknown]
  - Poor quality sleep [Unknown]
  - Weight increased [Unknown]
  - Blood pressure decreased [Unknown]
  - Benign prostatic hyperplasia [Unknown]
  - Hypertension [Unknown]
  - Hyperlipidaemia [Unknown]
  - Exercise lack of [Unknown]
  - Rash pustular [Unknown]
  - Musculoskeletal pain [Unknown]
